FAERS Safety Report 10453095 (Version 1)
Quarter: 2014Q3

REPORT INFORMATION
  Report Type: Spontaneous
  Country: US (occurrence: None)
  Receive Date: 20140912
  Receipt Date: 20140912
  Transmission Date: 20150326
  Serious: Yes (Disabling)
  Sender: FDA-Public Use
  Company Number: None

PATIENT
  Age: 36 Year
  Sex: Female
  Weight: 70.31 kg

DRUGS (1)
  1. ENOXAPARIN SODIUM. [Suspect]
     Active Substance: ENOXAPARIN SODIUM
     Indication: THROMBOSIS PROPHYLAXIS
     Dosage: 30MG, ONCE DAILY, GIVEN INTO/UNDER THE SKIN
     Route: 050
     Dates: start: 20140822, end: 20140830

REACTIONS (12)
  - Ear pain [None]
  - Pyrexia [None]
  - Chills [None]
  - Pain [None]
  - Hot flush [None]
  - Fatigue [None]
  - Product quality issue [None]
  - Nausea [None]
  - Nasopharyngitis [None]
  - Serratia test positive [None]
  - Oropharyngeal pain [None]
  - Product contamination [None]

NARRATIVE: CASE EVENT DATE: 20140830
